FAERS Safety Report 23837832 (Version 1)
Quarter: 2024Q2

REPORT INFORMATION
  Report Type: Spontaneous
  Country: US (occurrence: US)
  Receive Date: 20240509
  Receipt Date: 20240509
  Transmission Date: 20240716
  Serious: No
  Sender: FDA-Public Use
  Company Number: US-SA-SAC20240501000706

PATIENT
  Age: 67 Year
  Sex: Male

DRUGS (1)
  1. DUPILUMAB [Suspect]
     Active Substance: DUPILUMAB
     Indication: Rash
     Dosage: UNK
     Route: 058

REACTIONS (6)
  - Acarodermatitis [Recovering/Resolving]
  - Pruritus [Not Recovered/Not Resolved]
  - Rash [Not Recovered/Not Resolved]
  - Eosinophil count increased [Recovering/Resolving]
  - C-reactive protein increased [Recovering/Resolving]
  - Drug ineffective for unapproved indication [Unknown]
